FAERS Safety Report 24705836 (Version 1)
Quarter: 2024Q4

REPORT INFORMATION
  Report Type: Spontaneous
  Country: US (occurrence: US)
  Receive Date: 20241206
  Receipt Date: 20241206
  Transmission Date: 20250114
  Serious: No
  Sender: BAUSCH AND LOMB
  Company Number: US-BAUSCHBL-2024BNL038097

PATIENT
  Sex: Female
  Weight: 63.5 kg

DRUGS (4)
  1. MIEBO [Suspect]
     Active Substance: PERFLUOROHEXYLOCTANE
     Indication: Product used for unknown indication
     Dosage: 2-3 TIMES DAILY AS NEEDED
     Route: 047
  2. XIIDRA [Suspect]
     Active Substance: LIFITEGRAST
     Indication: Product used for unknown indication
     Route: 065
  3. REFRESH PRESERVATIVE FREE [Concomitant]
     Indication: Product used for unknown indication
     Route: 065
  4. DE3 OMEGA [Concomitant]
     Indication: Product used for unknown indication
     Route: 065

REACTIONS (4)
  - Asthenopia [Unknown]
  - Photophobia [Unknown]
  - Ocular discomfort [Recovered/Resolved]
  - Inappropriate schedule of product administration [Unknown]
